FAERS Safety Report 6177282-1 (Version None)
Quarter: 2009Q2

REPORT INFORMATION
  Report Type: 
  Country: None (occurrence: None)
  Receive Date: 20090504
  Receipt Date: 20090423
  Transmission Date: 20091009
  Serious: Yes (Other)
  Sender: FDA-Public Use
  Company Number: US-BAYER-200917284NA

PATIENT
  Age: 61 Year
  Sex: Male

DRUGS (4)
  1. AVELOX [Suspect]
     Indication: BRONCHITIS
     Dates: start: 20090226
  2. EXFORGE [Concomitant]
  3. PENTOXIFYLLINE [Concomitant]
  4. ASPIRIN [Concomitant]

REACTIONS (8)
  - ABNORMAL DREAMS [None]
  - CHILLS [None]
  - HEPATIC ENZYME INCREASED [None]
  - MALAISE [None]
  - PANCREATIC ENZYMES INCREASED [None]
  - PANCREATITIS [None]
  - PYREXIA [None]
  - URINARY TRACT INFECTION [None]
